FAERS Safety Report 8074345-0 (Version None)
Quarter: 2012Q1

REPORT INFORMATION
  Report Type: 
  Country: None (occurrence: None)
  Receive Date: 20120126
  Receipt Date: 20120125
  Transmission Date: 20120608
  Serious: Yes (Hospitalization)
  Sender: FDA-Public Use
  Company Number: US-GLAXOSMITHKLINE-A0814542A

PATIENT
  Age: 63 Year
  Sex: Female

DRUGS (4)
  1. SIMVASTATIN [Concomitant]
  2. METFORMIN HCL [Concomitant]
  3. AVANDIA [Suspect]
     Indication: TYPE 2 DIABETES MELLITUS
     Dosage: 4MG PER DAY
     Route: 048
     Dates: start: 20050101, end: 20081123
  4. ZESTRIL [Concomitant]

REACTIONS (1)
  - MYOCARDIAL INFARCTION [None]
